FAERS Safety Report 24636683 (Version 1)
Quarter: 2024Q4

REPORT INFORMATION
  Report Type: Spontaneous
  Country: US (occurrence: US)
  Receive Date: 20241119
  Receipt Date: 20241119
  Transmission Date: 20250114
  Serious: Yes (Other)
  Sender: CHATTEM
  Company Number: US-OPELLA-2024OHG038472

PATIENT
  Sex: Female

DRUGS (1)
  1. ICY HOT XL BACK AND LARGE AREAS [Suspect]
     Active Substance: MENTHOL
     Indication: Pain
     Route: 061

REACTIONS (12)
  - Nerve injury [Unknown]
  - Hypoaesthesia [Unknown]
  - Deformity [Unknown]
  - Injury [Unknown]
  - Pain [Unknown]
  - Muscle strain [Unknown]
  - Nerve compression [Unknown]
  - Wound [Unknown]
  - Pruritus [Unknown]
  - Blister [Unknown]
  - Chemical burn [Unknown]
  - Product adhesion issue [Unknown]

NARRATIVE: CASE EVENT DATE: 20210101
